FAERS Safety Report 24290667 (Version 1)
Quarter: 2024Q3

REPORT INFORMATION
  Report Type: Report from Study
  Country: HK (occurrence: HK)
  Receive Date: 20240906
  Receipt Date: 20240906
  Transmission Date: 20241017
  Serious: Yes (Other)
  Sender: JOHNSON AND JOHNSON
  Company Number: HK-UCBSA-2024040121

PATIENT
  Age: 37 Year
  Sex: Male

DRUGS (1)
  1. CETIRIZINE HYDROCHLORIDE [Suspect]
     Active Substance: CETIRIZINE HYDROCHLORIDE
     Indication: Product used for unknown indication
     Dosage: UNK
     Route: 065

REACTIONS (6)
  - Circulatory collapse [Unknown]
  - Diabetic ketoacidosis [Unknown]
  - Seizure [Unknown]
  - Hypertension [Unknown]
  - Hyperthermia [Unknown]
  - Sinus tachycardia [Unknown]
